FAERS Safety Report 14631952 (Version 2)
Quarter: 2018Q1

REPORT INFORMATION
  Report Type: Spontaneous
  Country: GB (occurrence: GB)
  Receive Date: 20180313
  Receipt Date: 20180313
  Transmission Date: 20180509
  Serious: Yes (Other)
  Sender: FDA-Public Use
  Company Number: GB-BAUSCH-BL-2018-005912

PATIENT
  Age: 23 Year
  Sex: Female

DRUGS (2)
  1. APIXABAN [Concomitant]
     Active Substance: APIXABAN
     Indication: PRODUCT USED FOR UNKNOWN INDICATION
     Dates: start: 20180201
  2. METRONIDAZOLE. [Suspect]
     Active Substance: METRONIDAZOLE
     Indication: PRODUCT USED FOR UNKNOWN INDICATION
     Route: 048
     Dates: start: 20180102, end: 20180205

REACTIONS (8)
  - Confusional state [Recovering/Resolving]
  - Prosopagnosia [Recovering/Resolving]
  - Memory impairment [Recovering/Resolving]
  - Personality change [Recovering/Resolving]
  - Phonophobia [Recovering/Resolving]
  - Emotional poverty [Recovering/Resolving]
  - Drooling [Recovering/Resolving]
  - Dysarthria [Recovering/Resolving]

NARRATIVE: CASE EVENT DATE: 2018
